FAERS Safety Report 5715720-6 (Version None)
Quarter: 2008Q2

REPORT INFORMATION
  Report Type: 
  Country: None (occurrence: None)
  Receive Date: 20080423
  Receipt Date: 20080423
  Transmission Date: 20081010
  Serious: Yes (Hospitalization)
  Sender: FDA-Public Use
  Company Number: None

PATIENT
  Age: 62 Year
  Sex: Male

DRUGS (1)
  1. ETODOLAC [Suspect]
     Dosage: 400 MG BID PO
     Route: 048
     Dates: start: 20080220, end: 20080226

REACTIONS (7)
  - ANAL FISSURE [None]
  - ANAL INFECTION [None]
  - DUODENAL ULCER [None]
  - GASTROINTESTINAL HAEMORRHAGE [None]
  - GASTROINTESTINAL ULCER [None]
  - HAEMORRHOIDS [None]
  - NODULE [None]
